FAERS Safety Report 17912472 (Version 1)
Quarter: 2020Q2

REPORT INFORMATION
  Report Type: Spontaneous
  Country: US (occurrence: US)
  Receive Date: 20200618
  Receipt Date: 20200618
  Transmission Date: 20200714
  Serious: No
  Sender: FDA-Public Use
  Company Number: None

PATIENT
  Age: 69 Year
  Sex: Male
  Weight: 103.5 kg

DRUGS (15)
  1. SYNTHROID [Concomitant]
     Active Substance: LEVOTHYROXINE SODIUM
  2. VENTOLIN [Concomitant]
     Active Substance: ALBUTEROL SULFATE
  3. VITAMIN D [Concomitant]
     Active Substance: VITAMIN D NOS
  4. LORAZEPAM. [Suspect]
     Active Substance: LORAZEPAM
     Indication: INSOMNIA
     Dosage: ?          QUANTITY:60 TABLET(S);?
     Route: 048
     Dates: start: 20200530, end: 20200531
  5. XOLIAR SHOTS [Concomitant]
  6. OMEPRAZOLE. [Concomitant]
     Active Substance: OMEPRAZOLE
  7. LORAZEPAM. [Concomitant]
     Active Substance: LORAZEPAM
  8. METHOCARBAM [Concomitant]
     Active Substance: METHOCARBAMOL
  9. MUCINEX [Concomitant]
     Active Substance: GUAIFENESIN
  10. DELZICOL [Concomitant]
     Active Substance: MESALAMINE
  11. TAMSULOSIN [Concomitant]
     Active Substance: TAMSULOSIN
  12. AZELASTINE. [Concomitant]
     Active Substance: AZELASTINE HYDROCHLORIDE
  13. SINGULAIR [Concomitant]
     Active Substance: MONTELUKAST SODIUM
  14. SYMBICORT [Concomitant]
     Active Substance: BUDESONIDE\FORMOTEROL FUMARATE DIHYDRATE
  15. ALEGRA [Concomitant]

REACTIONS (2)
  - Product substitution issue [None]
  - Abdominal pain upper [None]

NARRATIVE: CASE EVENT DATE: 20200530
